FAERS Safety Report 25140743 (Version 3)
Quarter: 2025Q2

REPORT INFORMATION
  Report Type: Spontaneous
  Country: JP (occurrence: JP)
  Receive Date: 20250331
  Receipt Date: 20250417
  Transmission Date: 20250717
  Serious: Yes (Life-Threatening, Other)
  Sender: PFIZER
  Company Number: JP-SEATTLE GENETICS-2024SGN05292

PATIENT
  Age: 65 Year
  Sex: Male

DRUGS (5)
  1. ADCETRIS [Suspect]
     Active Substance: BRENTUXIMAB VEDOTIN
     Indication: Peripheral T-cell lymphoma unspecified
     Dosage: 1.8 MG/KG, EVERY 3 WEEKS (8 CYCLES)
  2. CYCLOPHOSPHAMIDE [Suspect]
     Active Substance: CYCLOPHOSPHAMIDE
     Indication: Peripheral T-cell lymphoma unspecified
     Dosage: UNK UNK, Q3WEEKS
     Route: 065
  3. DOXORUBICIN [Suspect]
     Active Substance: DOXORUBICIN
     Indication: Peripheral T-cell lymphoma unspecified
     Dosage: UNK UNK, Q3WEEKS
     Route: 065
  4. VINCRISTINE [Suspect]
     Active Substance: VINCRISTINE
     Indication: Peripheral T-cell lymphoma unspecified
     Dosage: UNK UNK, Q3WEEKS
     Route: 065
  5. PREDNISONE [Suspect]
     Active Substance: PREDNISONE
     Indication: Peripheral T-cell lymphoma unspecified
     Dosage: UNK UNK, Q3WEEKS
     Route: 065

REACTIONS (2)
  - Myelodysplastic syndrome [Unknown]
  - Second primary malignancy [Unknown]
